FAERS Safety Report 22314900 (Version 1)
Quarter: 2023Q2

REPORT INFORMATION
  Report Type: Spontaneous
  Country: US (occurrence: None)
  Receive Date: 20230511
  Receipt Date: 20230511
  Transmission Date: 20230722
  Serious: Yes (Other)
  Sender: FDA-Public Use
  Company Number: None

PATIENT
  Age: 79 Year
  Sex: Female

DRUGS (2)
  1. CAPECITABINE [Suspect]
     Active Substance: CAPECITABINE
     Indication: Breast cancer metastatic
     Dosage: FREQUENCY : TWICE A DAY;?
     Route: 002
     Dates: start: 20230424, end: 20230504
  2. ZOFRAN [Concomitant]
     Active Substance: ONDANSETRON HYDROCHLORIDE
     Dates: start: 20230424, end: 20230504

REACTIONS (7)
  - Drug intolerance [None]
  - Dizziness [None]
  - Asthenia [None]
  - Retching [None]
  - Headache [None]
  - Hallucination [None]
  - Feeling abnormal [None]

NARRATIVE: CASE EVENT DATE: 20230424
